FAERS Safety Report 7478831-3 (Version None)
Quarter: 2011Q2

REPORT INFORMATION
  Report Type: 
  Country: None (occurrence: None)
  Receive Date: 20110513
  Receipt Date: 20110509
  Transmission Date: 20111010
  Serious: Yes (Hospitalization, Other)
  Sender: FDA-Public Use
  Company Number: EG-ROCHE-775935

PATIENT

DRUGS (2)
  1. PEGASYS [Suspect]
     Indication: HEPATITIS C
     Dosage: FREQ: WEEKLY
     Route: 058
  2. COPEGUS [Suspect]
     Indication: HEPATITIS C
     Dosage: FREQ: DAILY
     Route: 048

REACTIONS (4)
  - DYSPNOEA [None]
  - ASCITES [None]
  - HYPERTENSION [None]
  - LOWER LIMB FRACTURE [None]
